FAERS Safety Report 20587568 (Version 1)
Quarter: 2022Q1

REPORT INFORMATION
  Report Type: Spontaneous
  Country: JP (occurrence: JP)
  Receive Date: 20220314
  Receipt Date: 20220314
  Transmission Date: 20220423
  Serious: Yes (Other)
  Sender: FDA-Public Use
  Company Number: JP-SUN PHARMACEUTICAL INDUSTRIES LTD-2022RR-329671

PATIENT
  Age: 67 Year
  Sex: Male
  Weight: 72.4 kg

DRUGS (7)
  1. TRABECTEDIN [Suspect]
     Active Substance: TRABECTEDIN
     Indication: Leiomyosarcoma
     Dosage: 1.2 MILLIGRAM/SQ. METER, D1, 10 COURSES
     Route: 065
  2. DOXORUBICIN [Suspect]
     Active Substance: DOXORUBICIN
     Indication: Leiomyosarcoma
     Dosage: 20 MILLIGRAM/SQ. METER, D1-3
     Route: 065
  3. PAZOPANIB [Suspect]
     Active Substance: PAZOPANIB
     Indication: Leiomyosarcoma
     Dosage: 800 MILLIGRAM
     Route: 048
  4. PAZOPANIB [Suspect]
     Active Substance: PAZOPANIB
     Dosage: 400 MILLIGRAM
     Route: 048
  5. PAZOPANIB [Suspect]
     Active Substance: PAZOPANIB
     Dosage: 200 MILLIGRAM
     Route: 048
  6. ERIBULIN [Suspect]
     Active Substance: ERIBULIN
     Indication: Leiomyosarcoma
     Dosage: 1.4 MILLIGRAM/SQ. METER, 6 COURSES
     Route: 065
  7. IFOSFAMIDE [Suspect]
     Active Substance: IFOSFAMIDE
     Indication: Leiomyosarcoma
     Dosage: 2500 MILLIGRAM/SQ. METER, D1-3

REACTIONS (7)
  - Disease progression [Unknown]
  - Therapeutic product effect incomplete [Unknown]
  - Palmar-plantar erythrodysaesthesia syndrome [Unknown]
  - Thrombocytopenia [Unknown]
  - Decreased appetite [Unknown]
  - Jaundice [Unknown]
  - Condition aggravated [Unknown]
